FAERS Safety Report 6712953-7 (Version None)
Quarter: 2010Q2

REPORT INFORMATION
  Report Type: 
  Country: None (occurrence: None)
  Receive Date: 20100506
  Receipt Date: 20100430
  Transmission Date: 20101027
  Serious: Yes (Hospitalization)
  Sender: FDA-Public Use
  Company Number: US-SANOFI-AVENTIS-2010SA006101

PATIENT
  Age: 71 Year
  Sex: Female

DRUGS (2)
  1. MULTAQ [Suspect]
     Indication: ATRIAL FIBRILLATION
     Route: 048
  2. LASIX [Concomitant]
     Route: 048

REACTIONS (4)
  - ANXIETY [None]
  - CARDIAC FAILURE [None]
  - DYSPNOEA [None]
  - NAUSEA [None]
